FAERS Safety Report 8320086-1 (Version None)
Quarter: 2012Q2

REPORT INFORMATION
  Report Type: 
  Country: None (occurrence: None)
  Receive Date: 20120429
  Receipt Date: 20120419
  Transmission Date: 20120825
  Serious: Yes (Hospitalization, Other)
  Sender: FDA-Public Use
  Company Number: US-VERTEX PHARMACEUTICALS INC.-AE-2012-005707

PATIENT
  Sex: Male

DRUGS (3)
  1. PEGINTERFERON [Concomitant]
     Indication: HEPATITIS C
     Dates: start: 20120101, end: 20120101
  2. INCIVEK [Suspect]
     Indication: HEPATITIS C
     Dates: start: 20120101, end: 20120101
  3. RIBAVIRIN [Concomitant]
     Indication: HEPATITIS C
     Dates: start: 20120101, end: 20120101

REACTIONS (3)
  - PULMONARY EMBOLISM [None]
  - ANAEMIA [None]
  - RASH [None]
